FAERS Safety Report 7153599-9 (Version None)
Quarter: 2010Q4

REPORT INFORMATION
  Report Type: 
  Country: None (occurrence: None)
  Receive Date: 20101213
  Receipt Date: 20101207
  Transmission Date: 20110411
  Serious: Yes (Disabling, Other)
  Sender: FDA-Public Use
  Company Number: GB-BRISTOL-MYERS SQUIBB COMPANY-15428121

PATIENT
  Age: 24 Year
  Sex: Female
  Weight: 54 kg

DRUGS (3)
  1. ABILIFY [Suspect]
     Indication: PSYCHOTIC DISORDER
     Route: 048
     Dates: start: 20101108, end: 20101121
  2. LORAZEPAM [Concomitant]
     Indication: ANXIETY
     Route: 048
     Dates: start: 20101110
  3. YASMIN [Concomitant]
     Indication: CONTRACEPTION
     Route: 048
     Dates: start: 20101108

REACTIONS (2)
  - BLUNTED AFFECT [None]
  - PARKINSONIAN CRISIS [None]
